FAERS Safety Report 17925186 (Version 2)
Quarter: 2020Q2

REPORT INFORMATION
  Report Type: Spontaneous
  Country: GB (occurrence: JP)
  Receive Date: 20200622
  Receipt Date: 20200625
  Transmission Date: 20200714
  Serious: Yes (Death, Other)
  Sender: FDA-Public Use
  Company Number: JP-ASTELLAS-2019US017438

PATIENT
  Age: 67 Year
  Sex: Female

DRUGS (2)
  1. AVASTIN [Suspect]
     Active Substance: BEVACIZUMAB
     Indication: LUNG ADENOCARCINOMA
     Dosage: UNK UNK, UNKNOWN FREQ. (DOSAGE IS UNCERTAIN.)
     Route: 041
  2. ERLOTINIB [Suspect]
     Active Substance: ERLOTINIB
     Indication: LUNG ADENOCARCINOMA
     Dosage: UNK, UNKNOWN FREQ.(DOSAGE IS UNCERTAIN)
     Route: 048

REACTIONS (4)
  - Skin erosion [Recovered/Resolved]
  - Metastases to central nervous system [Fatal]
  - Impaired healing [Unknown]
  - Erythema [Recovering/Resolving]
